FAERS Safety Report 14348492 (Version 1)
Quarter: 2018Q1

REPORT INFORMATION
  Report Type: Spontaneous
  Country: US (occurrence: US)
  Receive Date: 20180103
  Receipt Date: 20180103
  Transmission Date: 20180509
  Serious: Yes (Death, Other)
  Sender: FDA-Public Use
  Company Number: US-009507513-1801USA000508

PATIENT
  Age: 63 Year
  Sex: Male

DRUGS (3)
  1. ALPRAZOLAM. [Suspect]
     Active Substance: ALPRAZOLAM
  2. ACETAMINOPHEN. [Suspect]
     Active Substance: ACETAMINOPHEN
  3. REMERON [Suspect]
     Active Substance: MIRTAZAPINE
     Route: 048

REACTIONS (1)
  - Death [Fatal]
